FAERS Safety Report 11030662 (Version 1)
Quarter: 2015Q2

REPORT INFORMATION
  Report Type: Spontaneous
  Country: US (occurrence: US)
  Receive Date: 20150415
  Receipt Date: 20150415
  Transmission Date: 20150821
  Serious: No
  Sender: FDA-Public Use
  Company Number: US-BAUSCH-BL-2014-004893

PATIENT
  Sex: Female
  Weight: 86.26 kg

DRUGS (11)
  1. NEXIUM [Concomitant]
     Active Substance: ESOMEPRAZOLE MAGNESIUM
     Indication: GASTROOESOPHAGEAL REFLUX DISEASE
     Route: 048
  2. CYMBALTA [Concomitant]
     Active Substance: DULOXETINE HYDROCHLORIDE
     Indication: DEPRESSION
     Route: 048
  3. CLOBETASOL PROPIONATE. [Suspect]
     Active Substance: CLOBETASOL PROPIONATE
     Indication: PRODUCT USED FOR UNKNOWN INDICATION
  4. BUPROPION [Concomitant]
     Active Substance: BUPROPION
     Indication: DEPRESSION
     Route: 048
  5. KETOCONAZOLE. [Suspect]
     Active Substance: KETOCONAZOLE
     Indication: PRODUCT USED FOR UNKNOWN INDICATION
     Dates: start: 201407
  6. CICLOPIROX SHAMPOO 1% [Suspect]
     Active Substance: CICLOPIROX
     Indication: PSORIASIS
  7. HCTZ [Concomitant]
     Active Substance: HYDROCHLOROTHIAZIDE
     Indication: HYPERTENSION
     Route: 048
  8. LYRICA [Concomitant]
     Active Substance: PREGABALIN
     Indication: NEUROPATHY PERIPHERAL
     Route: 048
  9. LISINOPRIL. [Concomitant]
     Active Substance: LISINOPRIL
     Indication: HYPERTENSION
     Route: 048
  10. ATENOLOL. [Concomitant]
     Active Substance: ATENOLOL
     Indication: HYPERTENSION
     Route: 048
  11. SIMVASTATIN. [Concomitant]
     Active Substance: SIMVASTATIN
     Indication: BLOOD CHOLESTEROL
     Route: 048

REACTIONS (3)
  - Condition aggravated [Not Recovered/Not Resolved]
  - Product use issue [Not Recovered/Not Resolved]
  - Alopecia [Unknown]
